FAERS Safety Report 9227281 (Version 2)
Quarter: 2013Q2

REPORT INFORMATION
  Report Type: Spontaneous
  Country: US (occurrence: US)
  Receive Date: 20130412
  Receipt Date: 20130522
  Transmission Date: 20140414
  Serious: Yes (Hospitalization, Other)
  Sender: FDA-Public Use
  Company Number: PHEH2013US008085

PATIENT
  Sex: Female

DRUGS (1)
  1. DIOVAN HCT [Suspect]
     Dosage: 1 DF, (320 MG VALS, 12.5 MG HYDR)

REACTIONS (3)
  - Product package associated injury [Unknown]
  - Pain in extremity [Unknown]
  - Hypertension [Unknown]
